FAERS Safety Report 5749322-2 (Version None)
Quarter: 2008Q2

REPORT INFORMATION
  Report Type: 
  Country: None (occurrence: None)
  Receive Date: 20080527
  Receipt Date: 20080520
  Transmission Date: 20081010
  Serious: Yes (Other)
  Sender: FDA-Public Use
  Company Number: FR-AVENTIS-200811732FR

PATIENT
  Age: 66 Year
  Sex: Male

DRUGS (7)
  1. LOVENOX [Suspect]
     Indication: PROPHYLAXIS
     Route: 058
     Dates: start: 20080410, end: 20080401
  2. PLAVIX [Suspect]
     Indication: MYOCARDIAL INFARCTION
     Dates: start: 20040101
  3. PLAVIX [Suspect]
     Dates: start: 20040101
  4. COVERSYL                           /00790701/ [Concomitant]
  5. ATENOLOL [Concomitant]
  6. INEGY [Concomitant]
  7. MORPHINE [Concomitant]

REACTIONS (3)
  - HEPATITIS [None]
  - LIVER INJURY [None]
  - TRANSAMINASES INCREASED [None]
